FAERS Safety Report 5618360-2 (Version None)
Quarter: 2008Q1

REPORT INFORMATION
  Report Type: 
  Country: None (occurrence: None)
  Receive Date: 20080207
  Receipt Date: 20080107
  Transmission Date: 20080703
  Serious: No
  Sender: FDA-Public Use
  Company Number: US-BAYER-200810572NA

PATIENT
  Sex: Female

DRUGS (3)
  1. AVELOX [Suspect]
     Indication: SINUSITIS
     Route: 048
     Dates: start: 20071201
  2. FLONASE [Concomitant]
  3. ALLEGRA [Concomitant]

REACTIONS (5)
  - ARTHRALGIA [None]
  - MYALGIA [None]
  - NEURALGIA [None]
  - RASH [None]
  - SKIN DISCOMFORT [None]
